FAERS Safety Report 9055269 (Version 1)
Quarter: 2013Q1

REPORT INFORMATION
  Report Type: Report from Study
  Country: GB (occurrence: GB)
  Receive Date: 20130206
  Receipt Date: 20130206
  Transmission Date: 20140127
  Serious: Yes (Hospitalization)
  Sender: FDA-Public Use
  Company Number: GB-JNJFOC-20130201708

PATIENT
  Age: 50 Year
  Sex: Male

DRUGS (2)
  1. REMICADE [Suspect]
     Indication: ANKYLOSING SPONDYLITIS
     Route: 042
     Dates: start: 20050914
  2. HYDROXYCHLOROQUINE [Concomitant]

REACTIONS (4)
  - Intussusception [Unknown]
  - Small intestinal obstruction [Unknown]
  - Intestinal stenosis [Unknown]
  - Lower respiratory tract infection [Unknown]
